FAERS Safety Report 25557280 (Version 1)
Quarter: 2025Q3

REPORT INFORMATION
  Report Type: Spontaneous
  Country: US (occurrence: US)
  Receive Date: 20250715
  Receipt Date: 20250715
  Transmission Date: 20251020
  Serious: Yes (Disabling)
  Sender: CB FLEET
  Company Number: US-PRESTIGE-202507-US-001958

PATIENT
  Sex: Male

DRUGS (2)
  1. GOODYS EXTRA STRENGTH [Suspect]
     Active Substance: ACETAMINOPHEN\ASPIRIN\CAFFEINE
     Indication: Headache
     Route: 048
  2. GOODYS EXTRA STRENGTH [Suspect]
     Active Substance: ACETAMINOPHEN\ASPIRIN\CAFFEINE
     Indication: Pain

REACTIONS (5)
  - Nasal septum deviation [Not Recovered/Not Resolved]
  - Epistaxis [Not Recovered/Not Resolved]
  - Hepatic pain [Not Recovered/Not Resolved]
  - Incorrect route of product administration [None]
  - Product label confusion [None]
